FAERS Safety Report 8105500-9 (Version None)
Quarter: 2012Q1

REPORT INFORMATION
  Report Type: 
  Country: None (occurrence: None)
  Receive Date: 20120201
  Receipt Date: 20120126
  Transmission Date: 20120608
  Serious: Yes (Hospitalization)
  Sender: FDA-Public Use
  Company Number: FR-PFIZER INC-2012021186

PATIENT
  Age: 58 Year
  Sex: Male

DRUGS (8)
  1. CLOPIDOGREL [Suspect]
     Dosage: 75 MG, 1X/DAY
     Route: 048
     Dates: start: 20100101
  2. VAXIGRIP [Suspect]
     Dosage: 1 DF, SINGLE
     Dates: start: 20111001
  3. METOPROLOL [Suspect]
     Dosage: 100 MG, 1X/DAY
     Route: 048
     Dates: start: 20100101
  4. ZOLPIDEM [Suspect]
     Dosage: 10 MG, 1X/DAY
     Route: 048
     Dates: start: 20100101
  5. RAMIPRIL [Suspect]
     Dosage: 5 MG, 2X/DAY
     Route: 048
     Dates: start: 20100101
  6. ATORVASTATIN [Suspect]
     Dosage: 10 MG, 1X/DAY
     Route: 048
     Dates: start: 20100101
  7. NICORANDIL [Suspect]
     Dosage: 20 MG, 2X/DAY
     Route: 048
     Dates: start: 20100101
  8. ACETYLCYSTEINE [Suspect]
     Dosage: UNK
     Dates: start: 20111001

REACTIONS (1)
  - DERMATITIS ALLERGIC [None]
